FAERS Safety Report 13293733 (Version 1)
Quarter: 2017Q1

REPORT INFORMATION
  Report Type: Spontaneous
  Country: US (occurrence: US)
  Receive Date: 20170303
  Receipt Date: 20170303
  Transmission Date: 20170428
  Serious: Yes (Other)
  Sender: FDA-Public Use
  Company Number: US-BAYER-2017-041925

PATIENT
  Sex: Female

DRUGS (1)
  1. MIRENA [Suspect]
     Active Substance: LEVONORGESTREL
     Indication: CONTRACEPTION
     Dosage: 20 MCG/24HR, CONT
     Route: 015
     Dates: start: 201502, end: 201702

REACTIONS (7)
  - Vomiting [None]
  - Pregnancy with contraceptive device [None]
  - Drug ineffective [None]
  - Emotional distress [None]
  - Depression [None]
  - Pain [None]
  - Adverse event [None]

NARRATIVE: CASE EVENT DATE: 2017
